FAERS Safety Report 8848399 (Version 3)
Quarter: 2013Q3

REPORT INFORMATION
  Report Type: Spontaneous
  Country: US (occurrence: US)
  Receive Date: 20121019
  Receipt Date: 20130723
  Transmission Date: 20140515
  Serious: Yes (Life-Threatening, Hospitalization)
  Sender: FDA-Public Use
  Company Number: US-BIOGENIDEC-2012BI045496

PATIENT
  Sex: Female

DRUGS (1)
  1. TYSABRI [Suspect]
     Indication: MULTIPLE SCLEROSIS
     Route: 042
     Dates: start: 20110921

REACTIONS (10)
  - Pneumonia [Recovered/Resolved]
  - Sepsis [Recovered/Resolved]
  - Ill-defined disorder [Recovered/Resolved]
  - Haemorrhage [Recovered/Resolved]
  - Adhesiolysis [Recovered/Resolved]
  - Gastric bypass [Recovered/Resolved]
  - Gastric operation [Not Recovered/Not Resolved]
  - Computerised tomogram abdomen abnormal [Recovered/Resolved]
  - Fatigue [Recovered/Resolved]
  - Weight decreased [Not Recovered/Not Resolved]
